FAERS Safety Report 24424160 (Version 2)
Quarter: 2024Q4

REPORT INFORMATION
  Report Type: Spontaneous
  Country: FR (occurrence: FR)
  Receive Date: 20241010
  Receipt Date: 20241109
  Transmission Date: 20250115
  Serious: Yes (Death)
  Sender: TEVA
  Company Number: None

PATIENT
  Age: 69 Year
  Sex: Female
  Weight: 58 kg

DRUGS (8)
  1. ARIPIPRAZOLE [Interacting]
     Active Substance: ARIPIPRAZOLE
     Indication: Cognitive disorder
     Route: 048
     Dates: start: 2024, end: 20240828
  2. MIANSERIN [Interacting]
     Active Substance: MIANSERIN
     Indication: Product used for unknown indication
     Dosage: MIANSERIN HYDROCHLORIDE
     Route: 065
  3. PAXLOVID [Interacting]
     Active Substance: NIRMATRELVIR\RITONAVIR
     Indication: COVID-19
     Dosage: 150 MG + 100 MG
     Route: 048
     Dates: start: 20240821, end: 20240822
  4. PAXLOVID [Interacting]
     Active Substance: NIRMATRELVIR\RITONAVIR
     Indication: COVID-19
     Dosage: 150 MG + 100 MG
     Route: 048
     Dates: start: 20240823, end: 20240824
  5. PAROXETINE [Interacting]
     Active Substance: PAROXETINE
     Indication: Product used for unknown indication
     Dosage: PAROXETINE HYDROCHLORIDE ANHYDROUS
     Route: 065
  6. ZOPICLONE [Concomitant]
     Active Substance: ZOPICLONE
     Indication: Product used for unknown indication
     Route: 065
  7. TROPATEPINE HYDROCHLORIDE [Concomitant]
     Active Substance: TROPATEPINE HYDROCHLORIDE
     Indication: Product used for unknown indication
     Route: 065
  8. LEVOTHYROXINE [Concomitant]
     Active Substance: LEVOTHYROXINE
     Indication: Product used for unknown indication
     Route: 065

REACTIONS (1)
  - Extrapyramidal disorder [Fatal]

NARRATIVE: CASE EVENT DATE: 20240826
